FAERS Safety Report 10661810 (Version 1)
Quarter: 2014Q4

REPORT INFORMATION
  Report Type: Spontaneous
  Country: GB (occurrence: None)
  Receive Date: 20141216
  Receipt Date: 20141216
  Transmission Date: 20150529
  Serious: Yes (Other)
  Sender: FDA-Public Use
  Company Number: ADR-2014-02344

PATIENT
  Age: 5 Year
  Sex: Male

DRUGS (2)
  1. TRIHEXYPHENIDYL [Suspect]
     Active Substance: TRIHEXYPHENIDYL
  2. COMPOUNDED BACLOFEN INTRATHECAL 2000MCG/ML [Suspect]
     Active Substance: BACLOFEN

REACTIONS (8)
  - Irritability [None]
  - Tachycardia [None]
  - Flushing [None]
  - Dystonia [None]
  - Malaise [None]
  - Hypertension [None]
  - Vomiting [None]
  - Device occlusion [None]

NARRATIVE: CASE EVENT DATE: 20141001
